FAERS Safety Report 10086021 (Version 1)
Quarter: 2014Q2

REPORT INFORMATION
  Report Type: Report from Study
  Country: BR (occurrence: BR)
  Receive Date: 20140418
  Receipt Date: 20140418
  Transmission Date: 20141212
  Serious: Yes (Other)
  Sender: FDA-Public Use
  Company Number: PHHY2014BR046841

PATIENT
  Sex: Female
  Weight: 55 kg

DRUGS (3)
  1. ACLASTA [Suspect]
     Indication: OSTEOPOROSIS
     Dosage: ONCE YEAR
     Route: 042
     Dates: start: 2012
  2. SIMVASTATIN [Concomitant]
     Indication: BLOOD CHOLESTEROL INCREASED
     Dosage: 1 DF, ONCE/SINGLE
  3. PURAN T4 [Concomitant]
     Indication: THYROID DISORDER
     Dosage: 1 DF, ONCE/SINGLE

REACTIONS (1)
  - Ankylosing spondylitis [Recovering/Resolving]
